FAERS Safety Report 8835703 (Version 1)
Quarter: 2012Q4

REPORT INFORMATION
  Report Type: 
  Country: DE (occurrence: DE)
  Receive Date: 20121011
  Receipt Date: 20121011
  Transmission Date: 20130627
  Serious: Yes (Other)
  Sender: FDA-Public Use
  Company Number: DE-UCBSA-068334

PATIENT
  Age: 54 Year
  Sex: Female

DRUGS (8)
  1. LEVETIRACETAM [Suspect]
     Dosage: 1000 mg
     Dates: start: 2009
  2. LEVETIRACETAM [Suspect]
     Dosage: 2000 mg
  3. CARBAMAZEPINE [Concomitant]
     Dosage: 600 MG, EXTENDED REALEASE
     Dates: start: 2008, end: 2008
  4. CARBAMAZEPINE [Concomitant]
     Dosage: 400 MG
     Dates: start: 200809, end: 2008
  5. CARBAMAZEPINE [Concomitant]
     Dosage: 200 MG
     Dates: start: 200810
  6. CARBAMAZEPINE [Concomitant]
     Dosage: UPTITRATED TO 800 MG
     Dates: end: 2009
  7. CARBAMAZEPINE [Concomitant]
     Dosage: 1200 MG
     Dates: start: 2009
  8. CARBAMAZEPINE [Concomitant]
     Dosage: 1025 MG

REACTIONS (3)
  - Status epilepticus [Recovered/Resolved]
  - Depressed mood [Recovered/Resolved]
  - Aphasia [Recovered/Resolved]
